FAERS Safety Report 4891905-6 (Version None)
Quarter: 2006Q1

REPORT INFORMATION
  Report Type: 
  Country: None (occurrence: None)
  Receive Date: 20060124
  Receipt Date: 20060110
  Transmission Date: 20060701
  Serious: Yes (Hospitalization)
  Sender: FDA-Public Use
  Company Number: S06-UKI-00062-01

PATIENT
  Age: 78 Year
  Sex: Female

DRUGS (3)
  1. CITALOPRAM HYDROBROMIDE [Suspect]
     Indication: DEPRESSION
     Dosage: 10 MG QD PO
     Route: 048
     Dates: start: 20051230, end: 20060109
  2. ASPIRIN [Concomitant]
  3. VALSARTAN [Concomitant]

REACTIONS (1)
  - PLATELET COUNT ABNORMAL [None]
